FAERS Safety Report 8193007 (Version 2)
Quarter: 2014Q1

REPORT INFORMATION
  Report Type: Spontaneous
  Country: US (occurrence: US)
  Receive Date: 20111021
  Receipt Date: 20140326
  Transmission Date: 20141002
  Serious: Yes (Other)
  Sender: FDA-Public Use
  Company Number: US-RANBAXY-2011US-49512

PATIENT
  Age: 35 Year
  Sex: Male

DRUGS (1)
  1. IBUPROFEN [Suspect]
     Indication: BACK PAIN
     Dosage: } 30 TABLETS/DAY
     Route: 065

REACTIONS (3)
  - Overdose [Recovering/Resolving]
  - Quadriplegia [Recovering/Resolving]
  - Hypokalaemia [Recovering/Resolving]
